FAERS Safety Report 8130858 (Version 4)
Quarter: 2013Q1

REPORT INFORMATION
  Report Type: Spontaneous
  Country: GB (occurrence: GB)
  Receive Date: 20110912
  Receipt Date: 20130110
  Transmission Date: 20140127
  Serious: Yes (Death)
  Sender: FDA-Public Use
  Company Number: GB-ROCHE-800913

PATIENT
  Age: 44 Year
  Sex: Male

DRUGS (6)
  1. MYCOPHENOLATE MOFETIL [Suspect]
     Indication: IMMUNOSUPPRESSION
     Route: 065
     Dates: start: 2002, end: 201003
  2. RITUXIMAB [Suspect]
     Indication: IMMUNOSUPPRESSION
     Route: 065
  3. DACLIZUMAB [Suspect]
     Indication: IMMUNOSUPPRESSION
     Route: 065
  4. PREDNISOLONE [Suspect]
     Indication: IMMUNOSUPPRESSION
     Route: 065
  5. METHYLPREDNISOLONE [Suspect]
     Indication: IMMUNOSUPPRESSION
     Route: 065
     Dates: start: 2002
  6. TACROLIMUS [Suspect]
     Indication: IMMUNOSUPPRESSION
     Route: 065
     Dates: start: 2002

REACTIONS (2)
  - Angiosarcoma [Fatal]
  - Metastases to lung [Fatal]
